FAERS Safety Report 21856783 (Version 1)
Quarter: 2023Q1

REPORT INFORMATION
  Report Type: Report from Study
  Country: AU (occurrence: AU)
  Receive Date: 20230113
  Receipt Date: 20230113
  Transmission Date: 20230418
  Serious: Yes (Hospitalization, Other)
  Sender: FDA-Public Use
  Company Number: AU-002147023-NVSC2023AU006395

PATIENT
  Sex: Male

DRUGS (1)
  1. COSENTYX [Suspect]
     Active Substance: SECUKINUMAB
     Indication: Psoriatic arthropathy
     Dosage: QMO
     Route: 058
     Dates: start: 20161220

REACTIONS (4)
  - COVID-19 [Unknown]
  - Atrial fibrillation [Unknown]
  - Psoriatic arthropathy [Unknown]
  - Obstructive sleep apnoea syndrome [Unknown]
